FAERS Safety Report 6083093-8 (Version None)
Quarter: 2009Q1

REPORT INFORMATION
  Report Type: 
  Country: None (occurrence: None)
  Receive Date: 20090219
  Receipt Date: 20090211
  Transmission Date: 20090719
  Serious: Yes (Other)
  Sender: FDA-Public Use
  Company Number: ES-RANBAXY-2009RR-21832

PATIENT
  Age: 54 Year
  Sex: Male

DRUGS (6)
  1. ZIDOVUDINE [Suspect]
     Indication: HIV INFECTION
  2. LOPINAVIR AND RITONAVIR [Suspect]
     Indication: HIV INFECTION
  3. LAMIVUDINE [Suspect]
     Indication: HIV INFECTION
  4. FLUTICASONE PROPIONATE [Suspect]
     Indication: LOWER RESPIRATORY TRACT INFECTION
  5. SALMETEROL [Suspect]
     Indication: LOWER RESPIRATORY TRACT INFECTION
  6. RITONAVIR [Suspect]
     Indication: HIV INFECTION

REACTIONS (2)
  - CUSHING'S SYNDROME [None]
  - DRUG INTERACTION [None]
